FAERS Safety Report 21011705 (Version 3)
Quarter: 2022Q4

REPORT INFORMATION
  Report Type: Report from Study
  Country: US (occurrence: US)
  Receive Date: 20220627
  Receipt Date: 20221031
  Transmission Date: 20230113
  Serious: Yes (Hospitalization, Other)
  Sender: FDA-Public Use
  Company Number: US-OTSUKA PHARMACEUTICAL NETHERLANDS B.V.-AUR-001843

PATIENT
  Age: 42 Year
  Sex: Female
  Weight: 158.73 kg

DRUGS (35)
  1. LUPKYNIS [Suspect]
     Active Substance: VOCLOSPORIN
     Indication: Lupus nephritis
     Dosage: 23.7 MILLIGRAM, BID
     Route: 048
     Dates: start: 20220418
  2. LUPKYNIS [Suspect]
     Active Substance: VOCLOSPORIN
     Dosage: 23.7 MILLIGRAM, BID
     Route: 048
     Dates: start: 20220507
  3. NORVASC [Concomitant]
     Active Substance: AMLODIPINE BESYLATE
     Indication: Product used for unknown indication
     Dosage: 5 MILLIGRAM, BID
     Route: 048
  4. FLONASE [Concomitant]
     Active Substance: FLUTICASONE PROPIONATE
     Indication: Product used for unknown indication
     Dosage: UNK (50 MCG/ACTUATION) 2 SPRAYS TWO TIMES DAILY
     Route: 045
  5. LIDOCAINE [Concomitant]
     Active Substance: LIDOCAINE
     Indication: Product used for unknown indication
     Dosage: UNK (2 PATCHES ON THE SKIN DAILY FOR 30 DAYS)
     Route: 061
  6. CALMOSEPTINE [MENTHOL;ZINC OXIDE] [Concomitant]
     Indication: Product used for unknown indication
     Dosage: UNK (APPLY TWO TIMES A DAY AS NEEDED)
     Route: 061
  7. VITAMINS [Concomitant]
     Active Substance: VITAMINS
     Indication: Product used for unknown indication
     Dosage: UNK (9 MG IRON - 400 MCG) TAKEN DAILY
     Route: 048
  8. ZANAFLEX [Concomitant]
     Active Substance: TIZANIDINE HYDROCHLORIDE
     Indication: Product used for unknown indication
     Dosage: 4 MILLIGRAM, TID
     Route: 048
  9. VITAMIN D2 [Concomitant]
     Active Substance: ERGOCALCIFEROL
     Indication: Product used for unknown indication
     Dosage: UNK (50000 INTERNATIONAL UNIT ONCE PER WEEK)
     Route: 048
  10. PEPCID AC [Concomitant]
     Active Substance: FAMOTIDINE
     Indication: Product used for unknown indication
     Dosage: 20 MILLIGRAM, BID
     Route: 048
  11. LASIX [Concomitant]
     Active Substance: FUROSEMIDE
     Indication: Product used for unknown indication
     Dosage: 160 MILLIGRAM, BID
     Route: 048
  12. NEURONTIN [Concomitant]
     Active Substance: GABAPENTIN
     Indication: Product used for unknown indication
     Dosage: UNK (900-1200 MG TWICE A DAY)
  13. COZAAR [Concomitant]
     Active Substance: LOSARTAN POTASSIUM
     Indication: Product used for unknown indication
     Dosage: 100 MILLIGRAM, QD
     Route: 048
  14. ZAROXOLYN [Concomitant]
     Active Substance: METOLAZONE
     Indication: Product used for unknown indication
     Dosage: 10 MILLIGRAM, QD
     Route: 048
  15. ALDACTONE [Concomitant]
     Active Substance: SPIRONOLACTONE
     Indication: Product used for unknown indication
     Dosage: 50 MILLIGRAM, QD
     Route: 048
  16. TYLENOL [Concomitant]
     Active Substance: ACETAMINOPHEN
     Indication: Pain
     Dosage: 650 MILLIGRAM, QD (AS NEEDED)
     Route: 048
  17. PROVENTIL HFA [SALBUTAMOL] [Concomitant]
     Indication: Wheezing
     Dosage: UNK (2 PUFFS INTO THE LUNGS EVERY 6 HOURS AS NEEDED)
  18. CALCIUM CARBONATE\CHOLECALCIFEROL [Concomitant]
     Active Substance: CALCIUM CARBONATE\CHOLECALCIFEROL
     Indication: Product used for unknown indication
     Dosage: UNK
     Route: 048
  19. COREG [Concomitant]
     Active Substance: CARVEDILOL
     Indication: Product used for unknown indication
     Dosage: 12.5 MILLIGRAM, BID
     Route: 048
  20. DAPSONE [Concomitant]
     Active Substance: DAPSONE
     Indication: Product used for unknown indication
     Dosage: 100 MILLIGRAM, QD
     Route: 048
  21. EMLA [Concomitant]
     Active Substance: LIDOCAINE\PRILOCAINE
     Indication: Product used for unknown indication
     Dosage: UNK
     Route: 061
  22. CLARITIN [Concomitant]
     Active Substance: LORATADINE
     Indication: Hypersensitivity
     Dosage: 10 MILLIGRAM, QD (AS NEEDED)
     Route: 048
  23. ROBAXIN [Concomitant]
     Active Substance: METHOCARBAMOL
     Indication: Product used for unknown indication
     Dosage: 500 MILLIGRAM, QD (AS NEEDED)
     Route: 048
  24. NARCAN [Concomitant]
     Active Substance: NALOXONE HYDROCHLORIDE
     Indication: Product used for unknown indication
     Dosage: UNK (1 ML INTO EACH NOSTRIL FOR SUSPECTED OVERDOSE)
     Route: 045
  25. PRAVACHOL [Concomitant]
     Active Substance: PRAVASTATIN SODIUM
     Indication: Product used for unknown indication
     Dosage: 20 MILLIGRAM, QD
     Route: 048
  26. PREDNISOLONE [Concomitant]
     Active Substance: PREDNISOLONE
     Indication: Product used for unknown indication
     Dosage: 10 MILLIGRAM, QD
     Route: 048
  27. SENOKOT [Concomitant]
     Active Substance: SENNOSIDES
     Indication: Constipation
     Dosage: 19.2 MILLIGRAM, BID
     Route: 048
  28. ULTRAM ER [Concomitant]
     Active Substance: TRAMADOL HYDROCHLORIDE
     Indication: Pain
     Dosage: UNK (50-100 MG EVERY 6 HOURS AS NEEDED)
     Route: 048
  29. HERBALS\TURMERIC [Concomitant]
     Active Substance: HERBALS\TURMERIC
     Indication: Product used for unknown indication
     Route: 048
  30. PREDNISONE [Concomitant]
     Active Substance: PREDNISONE
     Indication: Lupus nephritis
     Dosage: 50 MILLIGRAM, QD
     Dates: start: 202202
  31. PREDNISONE [Concomitant]
     Active Substance: PREDNISONE
     Dosage: 10 MILLIGRAM, QD
  32. MYCOPHENOLIC ACID [Concomitant]
     Active Substance: MYCOPHENOLIC ACID
     Indication: Lupus nephritis
     Dosage: 500 MILLIGRAM, BID
     Dates: start: 202202
  33. MYCOPHENOLIC ACID [Concomitant]
     Active Substance: MYCOPHENOLIC ACID
     Dosage: 1500 MILLIGRAM, BID
     Dates: start: 20220322
  34. FAMOTIDINE [Concomitant]
     Active Substance: FAMOTIDINE
     Indication: Ulcer
     Dosage: 20 MILLIGRAM, QD
     Dates: start: 20220222
  35. LOSARTAN [Concomitant]
     Active Substance: LOSARTAN
     Indication: Hypertension
     Dosage: 100 MILLIGRAM, QD
     Dates: start: 20220222

REACTIONS (15)
  - Thrombosis [Not Recovered/Not Resolved]
  - Fluid retention [Not Recovered/Not Resolved]
  - Pulmonary embolism [Not Recovered/Not Resolved]
  - Dyspnoea [Recovered/Resolved]
  - Acute respiratory failure [Recovered/Resolved]
  - Nephrotic syndrome [Recovering/Resolving]
  - Generalised oedema [Not Recovered/Not Resolved]
  - Pain [Recovered/Resolved]
  - Laboratory test abnormal [Unknown]
  - Hepatic lesion [Unknown]
  - Diastolic dysfunction [Unknown]
  - Asthenia [Unknown]
  - Arthralgia [Unknown]
  - Fatigue [Not Recovered/Not Resolved]
  - Anaemia [Not Recovered/Not Resolved]

NARRATIVE: CASE EVENT DATE: 20210801
